FAERS Safety Report 5177416-1 (Version None)
Quarter: 2006Q4

REPORT INFORMATION
  Report Type: 
  Country: None (occurrence: None)
  Receive Date: 20061207
  Receipt Date: 20061129
  Transmission Date: 20070319
  Serious: No
  Sender: FDA-Public Use
  Company Number: 2006148856

PATIENT
  Age: 28 Month
  Sex: Male
  Weight: 13.6079 kg

DRUGS (3)
  1. CETIRIZINE HCL [Suspect]
     Indication: HYPERSENSITIVITY
     Dosage: 30 CC (1 IN 1 D)
     Dates: start: 20060101
  2. MONTELUKAST SODIUM (MONTELUKAST SODIUM) [Suspect]
  3. QVAR (BECLOMETASONE DIPROPIONATE) [Concomitant]

REACTIONS (11)
  - ABDOMINAL PAIN UPPER [None]
  - DIARRHOEA [None]
  - EPISTAXIS [None]
  - EXCESSIVE EYE BLINKING [None]
  - EYE PRURITUS [None]
  - HEADACHE [None]
  - PRURITUS [None]
  - RHINORRHOEA [None]
  - SKIN ULCER [None]
  - SOMNOLENCE [None]
  - URTICARIA [None]
